FAERS Safety Report 16935414 (Version 1)
Quarter: 2019Q4

REPORT INFORMATION
  Report Type: Spontaneous
  Country: US (occurrence: US)
  Receive Date: 20191018
  Receipt Date: 20191018
  Transmission Date: 20200122
  Serious: Yes (Other)
  Sender: FDA-Public Use
  Company Number: US-SA-2019SA285530

PATIENT
  Age: 57 Year
  Sex: Female
  Weight: 79.3 kg

DRUGS (18)
  1. PARAPLATIN [Concomitant]
     Active Substance: CARBOPLATIN
     Dosage: 990 MG, UNK
     Dates: start: 20090518, end: 20090518
  2. HERCEPTIN [Concomitant]
     Active Substance: TRASTUZUMAB
     Dosage: 520 MG, UNK
     Dates: start: 20090403, end: 20090403
  3. TAXOTERE [Suspect]
     Active Substance: DOCETAXEL
     Indication: BREAST CANCER FEMALE
     Dosage: 150 MG, Q3W
     Route: 042
     Dates: start: 20090202, end: 20090202
  4. TAXOTERE [Suspect]
     Active Substance: DOCETAXEL
     Dosage: 150 MG, Q3W
     Route: 042
     Dates: start: 20090223, end: 20090223
  5. TAXOTERE [Suspect]
     Active Substance: DOCETAXEL
     Dosage: 150 MG, Q3W
     Route: 042
     Dates: start: 20090316, end: 20090316
  6. TAXOTERE [Suspect]
     Active Substance: DOCETAXEL
     Dosage: 150 MG, Q3W
     Route: 042
     Dates: start: 20090403, end: 20090403
  7. PARAPLATIN [Concomitant]
     Active Substance: CARBOPLATIN
     Dosage: 888 MG, UNK
     Dates: start: 20090223, end: 20090223
  8. PARAPLATIN [Concomitant]
     Active Substance: CARBOPLATIN
     Dosage: 888 MG, UNK
     Dates: start: 20090316, end: 20090316
  9. PARAPLATIN [Concomitant]
     Active Substance: CARBOPLATIN
     Indication: BREAST CANCER FEMALE
     Dosage: 1008 MG, UNK
     Dates: start: 20090202, end: 20090202
  10. HERCEPTIN [Concomitant]
     Active Substance: TRASTUZUMAB
     Indication: BREAST CANCER FEMALE
     Dosage: 520 MG, UNK
     Dates: start: 20090202, end: 20090202
  11. TAXOTERE [Suspect]
     Active Substance: DOCETAXEL
     Dosage: 150 MG, Q3W
     Route: 042
     Dates: start: 20090427, end: 20090427
  12. TAXOTERE [Suspect]
     Active Substance: DOCETAXEL
     Dosage: 150 MG, Q3W
     Route: 042
     Dates: start: 20090518, end: 20090518
  13. PARAPLATIN [Concomitant]
     Active Substance: CARBOPLATIN
     Dosage: 1002 MG, UNK
     Dates: start: 20090403, end: 20090403
  14. HERCEPTIN [Concomitant]
     Active Substance: TRASTUZUMAB
     Dosage: 520 MG, UNK
     Dates: start: 20090316, end: 20090316
  15. HERCEPTIN [Concomitant]
     Active Substance: TRASTUZUMAB
     Dosage: 515 MG, UNK
     Dates: start: 20090518, end: 20090518
  16. HERCEPTIN [Concomitant]
     Active Substance: TRASTUZUMAB
     Dosage: 520 MG, UNK
     Dates: start: 20090223, end: 20090223
  17. HERCEPTIN [Concomitant]
     Active Substance: TRASTUZUMAB
     Dosage: 516 MG, UNK
     Dates: start: 20090427, end: 20090427
  18. PARAPLATIN [Concomitant]
     Active Substance: CARBOPLATIN
     Dosage: 990 MG, UNK
     Dates: start: 20090427, end: 20090427

REACTIONS (2)
  - Psychological trauma [Unknown]
  - Alopecia [Not Recovered/Not Resolved]

NARRATIVE: CASE EVENT DATE: 200902
